FAERS Safety Report 13587967 (Version 4)
Quarter: 2018Q3

REPORT INFORMATION
  Report Type: Spontaneous
  Country: US (occurrence: US)
  Receive Date: 20170527
  Receipt Date: 20180912
  Transmission Date: 20181010
  Serious: Yes (Hospitalization)
  Sender: FDA-Public Use
  Company Number: US-DSJP-DSU-2017-116008

PATIENT

DRUGS (3)
  1. TRIBENZOR [Suspect]
     Active Substance: AMLODIPINE BESYLATE\HYDROCHLOROTHIAZIDE\OLMESARTAN MEDOXOMIL
     Indication: HYPERTENSION
     Dosage: 40?5?12.5MG, QD
     Route: 048
  2. BENICAR HCT [Suspect]
     Active Substance: HYDROCHLOROTHIAZIDE\OLMESARTAN MEDOXOMIL
     Indication: HYPERTENSION
     Dosage: 40?25MG, QD
     Route: 048
     Dates: start: 20130320, end: 2015
  3. TRIBENZOR [Suspect]
     Active Substance: AMLODIPINE BESYLATE\HYDROCHLOROTHIAZIDE\OLMESARTAN MEDOXOMIL
     Dosage: 40?5?12.5MG, QD
     Route: 048
     Dates: start: 20130520

REACTIONS (23)
  - Clostridium difficile infection [Recovering/Resolving]
  - Arthralgia [Unknown]
  - Generalised oedema [Unknown]
  - Oesophagitis [Unknown]
  - Coeliac disease [Recovering/Resolving]
  - Asthenia [Unknown]
  - Insomnia [Unknown]
  - Irritable bowel syndrome [Unknown]
  - Confusional state [Unknown]
  - Anxiety [Unknown]
  - Ascites [Unknown]
  - Hypotension [Unknown]
  - Hypoglycaemia [Unknown]
  - Pancreatitis acute [Recovering/Resolving]
  - Sprue-like enteropathy [Recovering/Resolving]
  - Atrial fibrillation [Recovering/Resolving]
  - Alopecia [Unknown]
  - Muscle atrophy [Unknown]
  - Acute kidney injury [Unknown]
  - Haemorrhoids [Unknown]
  - Barrett^s oesophagus [Unknown]
  - Cholelithiasis [Unknown]
  - Myalgia [Unknown]

NARRATIVE: CASE EVENT DATE: 20140716
